FAERS Safety Report 10420168 (Version 1)
Quarter: 2014Q3

REPORT INFORMATION
  Report Type: Spontaneous
  Country: US (occurrence: None)
  Receive Date: 20140701
  Receipt Date: 20140701
  Transmission Date: 20150326
  Serious: No
  Sender: FDA-Public Use
  Company Number: 1000067426

PATIENT
  Sex: Female

DRUGS (2)
  1. LASIX [Concomitant]
     Active Substance: FUROSEMIDE
  2. LINZESS [Suspect]
     Active Substance: LINACLOTIDE

REACTIONS (1)
  - Diarrhoea [None]
